FAERS Safety Report 7981725-8 (Version None)
Quarter: 2011Q4

REPORT INFORMATION
  Report Type: 
  Country: None (occurrence: None)
  Receive Date: 20111215
  Receipt Date: 20111207
  Transmission Date: 20120403
  Serious: Yes (Other)
  Sender: FDA-Public Use
  Company Number: GB-JNJFOC-20111204282

PATIENT
  Age: 25 Year
  Sex: Female

DRUGS (2)
  1. NORGESTIMATE AND ETHINYL ESTRADIOL [Suspect]
     Indication: CONTRACEPTION
     Dosage: INITIATED 3 YEARS AGO
     Route: 048
  2. PAIN KILLERS [Concomitant]
     Indication: POSTOPERATIVE ANALGESIA
     Route: 065

REACTIONS (4)
  - DRUG DOSE OMISSION [None]
  - OFF LABEL USE [None]
  - WITHDRAWAL BLEED [None]
  - KNEE OPERATION [None]
